FAERS Safety Report 23711846 (Version 3)
Quarter: 2024Q2

REPORT INFORMATION
  Report Type: Spontaneous
  Country: US (occurrence: US)
  Receive Date: 20240405
  Receipt Date: 20240508
  Transmission Date: 20240715
  Serious: Yes (Other)
  Sender: FDA-Public Use
  Company Number: US-Vifor (International) Inc.-VIT-2024-02762

PATIENT
  Age: 70 Year
  Sex: Female

DRUGS (1)
  1. MIRCERA [Suspect]
     Active Substance: METHOXY POLYETHYLENE GLYCOL-EPOETIN BETA
     Indication: Anaemia of chronic disease
     Dosage: ON 27-NOV-2023, THE PATIENT HAD LAST ADMINISTRATION OF MIRCERA.

REACTIONS (3)
  - Myelodysplastic syndrome [Unknown]
  - Aplasia pure red cell [Unknown]
  - Product use issue [Unknown]

NARRATIVE: CASE EVENT DATE: 20220927
